FAERS Safety Report 7574220-1 (Version None)
Quarter: 2011Q2

REPORT INFORMATION
  Report Type: 
  Country: None (occurrence: None)
  Receive Date: 20110627
  Receipt Date: 20110124
  Transmission Date: 20111010
  Serious: Yes (Hospitalization)
  Sender: FDA-Public Use
  Company Number: US-BAYER-201037464NA

PATIENT
  Age: 23 Year
  Sex: Female
  Weight: 52.154 kg

DRUGS (9)
  1. YAZ [Suspect]
     Indication: PREMENSTRUAL SYNDROME
  2. ZOFRAN [Concomitant]
     Indication: NAUSEA
     Dosage: UNK
     Dates: start: 20071201, end: 20081201
  3. TRAMADOL HCL [Concomitant]
     Dosage: 37.5 MG, UNK
     Dates: start: 20071001
  4. PROMETHAZINE [Concomitant]
     Dosage: 25 MG, UNK
     Dates: start: 20070701
  5. YAZ [Suspect]
     Indication: CONTRACEPTION
     Route: 048
     Dates: start: 20070401, end: 20080701
  6. AZITHROMYCIN [Concomitant]
     Dosage: UNK
     Dates: start: 20070701
  7. PSEUDOVENT [Concomitant]
     Dosage: UNK
     Dates: start: 20070701
  8. LEVSIN [Concomitant]
     Indication: PAIN
     Dosage: UNK
     Dates: start: 20071201, end: 20081201
  9. PHENERGAN HCL [Concomitant]
     Indication: NAUSEA
     Dosage: UNK
     Dates: start: 20071001, end: 20091001

REACTIONS (3)
  - GALLBLADDER DISORDER [None]
  - PAIN [None]
  - CHOLECYSTITIS CHRONIC [None]
